FAERS Safety Report 5897661-7 (Version None)
Quarter: 2008Q3

REPORT INFORMATION
  Report Type: 
  Country: None (occurrence: None)
  Receive Date: 20080919
  Receipt Date: 20080826
  Transmission Date: 20090109
  Serious: No
  Sender: FDA-Public Use
  Company Number: US-WYE-H05727508

PATIENT
  Age: 63 Year
  Sex: Female
  Weight: 63.56 kg

DRUGS (2)
  1. PRISTIQ [Suspect]
     Indication: DEPRESSION
  2. LEVOXYL [Concomitant]

REACTIONS (3)
  - FATIGUE [None]
  - INSOMNIA [None]
  - NAUSEA [None]
